FAERS Safety Report 13666445 (Version 1)
Quarter: 2017Q2

REPORT INFORMATION
  Report Type: Spontaneous
  Country: US (occurrence: US)
  Receive Date: 20170619
  Receipt Date: 20170619
  Transmission Date: 20170830
  Serious: No
  Sender: FDA-Public Use
  Company Number: US-ROCHE-1333817

PATIENT
  Sex: Female

DRUGS (14)
  1. AVASTIN [Suspect]
     Active Substance: BEVACIZUMAB
     Indication: COLORECTAL CANCER
     Route: 042
     Dates: start: 2013
  2. KRILL OIL [Concomitant]
     Active Substance: DIETARY SUPPLEMENT
  3. XELODA [Suspect]
     Active Substance: CAPECITABINE
     Indication: COLON CANCER METASTATIC
     Dosage: 14 DAYS ON THEN 7 DAYS OFF
     Route: 048
  4. SODIUM PHENYLBUTYRATE. [Concomitant]
     Active Substance: SODIUM PHENYLBUTYRATE
  5. BIOTIN [Concomitant]
     Active Substance: BIOTIN
  6. AVASTIN [Suspect]
     Active Substance: BEVACIZUMAB
     Indication: RENAL CANCER
  7. ACAI [Concomitant]
  8. AVASTIN [Suspect]
     Active Substance: BEVACIZUMAB
     Indication: OVARIAN CANCER
  9. VITAMIN C [Concomitant]
     Active Substance: ASCORBIC ACID
  10. MILK THISTLE [Concomitant]
     Active Substance: MILK THISTLE
  11. COENZYME Q10 [Concomitant]
     Active Substance: UBIDECARENONE
  12. XELODA [Suspect]
     Active Substance: CAPECITABINE
     Indication: COLORECTAL CANCER
  13. ASPIRIN. [Concomitant]
     Active Substance: ASPIRIN
     Dosage: 1/2 OF BABY ASPIRIN
     Route: 065
  14. CURCUMIN [Concomitant]
     Active Substance: CURCUMIN

REACTIONS (4)
  - Hair texture abnormal [Not Recovered/Not Resolved]
  - Malaise [Not Recovered/Not Resolved]
  - Alopecia [Recovered/Resolved]
  - Muscle spasms [Not Recovered/Not Resolved]
